FAERS Safety Report 23486747 (Version 1)
Quarter: 2024Q1

REPORT INFORMATION
  Report Type: Spontaneous
  Country: US (occurrence: None)
  Receive Date: 20240205
  Receipt Date: 20240205
  Transmission Date: 20240410
  Serious: Yes (Hospitalization)
  Sender: FDA-Public Use
  Company Number: None

PATIENT
  Sex: Male

DRUGS (2)
  1. PROCRIT [Suspect]
     Active Substance: ERYTHROPOIETIN
     Indication: Nephrogenic anaemia
     Dosage: 20000 UNIT/ML INJECTION??INJECT 20,000 UNITS SUBCUTANEOUSLY EVERY TWO WEEKS???
     Route: 058
     Dates: start: 20231221
  2. VELTASSA POW [Concomitant]

REACTIONS (1)
  - Blood potassium increased [None]
